FAERS Safety Report 9281168 (Version 2)
Quarter: 2013Q2

REPORT INFORMATION
  Report Type: Spontaneous
  Country: FR (occurrence: FR)
  Receive Date: 20130509
  Receipt Date: 20130515
  Transmission Date: 20140414
  Serious: Yes (Hospitalization)
  Sender: FDA-Public Use
  Company Number: FR-ASTRAZENECA-2013SE30968

PATIENT
  Age: 1246 Week
  Sex: Female

DRUGS (42)
  1. MERONEM [Suspect]
     Indication: ANTIBIOTIC PROPHYLAXIS
     Route: 042
     Dates: start: 20130329, end: 20130407
  2. VANCOMYCINE [Interacting]
     Indication: ANTIBIOTIC PROPHYLAXIS
     Route: 042
     Dates: start: 20130329, end: 20130406
  3. CANCIDAS [Interacting]
     Route: 042
     Dates: start: 20130329, end: 20130406
  4. NEBCINE [Interacting]
     Route: 042
     Dates: start: 20130329, end: 20130406
  5. NEBCINE [Interacting]
     Dosage: GENERIC
     Route: 045
     Dates: start: 20130329, end: 20130405
  6. NEBCINE [Interacting]
     Dosage: GENERIC
     Route: 042
     Dates: start: 20130329, end: 20130405
  7. CASPOFUNGINE [Concomitant]
     Indication: ANTIBIOTIC PROPHYLAXIS
     Route: 042
  8. AMPHOTERICINE B [Concomitant]
     Route: 045
     Dates: start: 20130329
  9. COLIMYCINE [Concomitant]
     Route: 045
     Dates: start: 20130329
  10. MUPIROCINE [Concomitant]
     Route: 045
     Dates: start: 20130329
  11. CREON [Concomitant]
  12. CORTANCYL [Concomitant]
     Dates: end: 20130329
  13. MYFORTIC [Concomitant]
  14. PROGRAF [Concomitant]
  15. BACTRIM [Concomitant]
  16. ZYTHROMAX [Concomitant]
  17. SPORANOX [Concomitant]
  18. DIFFU K [Concomitant]
  19. SPASFON [Concomitant]
  20. PRAVASTATINE [Concomitant]
  21. INEXIUM [Concomitant]
     Dates: end: 20130329
  22. TRIATEC [Concomitant]
     Dates: end: 20130402
  23. DOLIPRANE [Concomitant]
  24. UVEDOSE [Concomitant]
  25. CALTRATE [Concomitant]
  26. SINGULAIR [Concomitant]
  27. BRICANYL [Concomitant]
  28. VENTOLINE [Concomitant]
  29. TACROLIMUS [Concomitant]
     Dates: start: 20130402
  30. GANCICLOVIR [Concomitant]
     Dates: start: 20130402
  31. CALCIPARINE [Concomitant]
     Dates: start: 20130401
  32. RAMIPRIL [Concomitant]
     Dates: start: 20130402
  33. EUPRESSYL [Concomitant]
  34. CICLOSPORINE [Concomitant]
     Dates: end: 20130402
  35. PARACETAMOL [Concomitant]
  36. ESOMEPRAZOLE [Concomitant]
     Dates: start: 20130405
  37. OMEPRAZOLE [Concomitant]
     Dates: start: 20130329, end: 20130405
  38. ACUPAN [Concomitant]
  39. METHYLPREDNISOLONE [Concomitant]
     Dates: start: 20130329, end: 20130403
  40. PREDNISONE [Concomitant]
     Dates: start: 20130403
  41. LASILIX [Concomitant]
  42. DOMPERIDONE [Concomitant]

REACTIONS (4)
  - Drug interaction [Unknown]
  - Overdose [Recovered/Resolved]
  - Renal failure acute [Recovered/Resolved]
  - Hepatocellular injury [Recovered/Resolved]
